FAERS Safety Report 9566317 (Version 1)
Quarter: 2013Q3

REPORT INFORMATION
  Report Type: Spontaneous
  Country: US (occurrence: US)
  Receive Date: 20130930
  Receipt Date: 20130930
  Transmission Date: 20140515
  Serious: No
  Sender: FDA-Public Use
  Company Number: US-PURDUE-USA-2012-0093332

PATIENT
  Sex: Male

DRUGS (1)
  1. INTERMEZZO [Suspect]
     Indication: INSOMNIA
     Dosage: UNK, SINGLE
     Route: 060

REACTIONS (3)
  - Inappropriate schedule of drug administration [Unknown]
  - Hangover [Unknown]
  - Drug effect delayed [Unknown]
